FAERS Safety Report 11595372 (Version 1)
Quarter: 2015Q4

REPORT INFORMATION
  Report Type: Report from Study
  Country: CN (occurrence: CN)
  Receive Date: 20151006
  Receipt Date: 20151006
  Transmission Date: 20160304
  Serious: Yes (Other)
  Sender: FDA-Public Use
  Company Number: CN-ROCHE-1640671

PATIENT

DRUGS (2)
  1. BEVACIZUMAB [Suspect]
     Active Substance: BEVACIZUMAB
     Indication: MALIGNANT GLIOMA
     Route: 065
  2. TEMOZOLOMIDE. [Suspect]
     Active Substance: TEMOZOLOMIDE
     Indication: MALIGNANT GLIOMA
     Dosage: FOR 7
     Route: 065

REACTIONS (6)
  - Gingival bleeding [Unknown]
  - Haemoglobin decreased [Unknown]
  - Epistaxis [Unknown]
  - Platelet count decreased [Unknown]
  - Gastrointestinal disorder [Unknown]
  - White blood cell count decreased [Unknown]
